FAERS Safety Report 7802894-6 (Version None)
Quarter: 2011Q4

REPORT INFORMATION
  Report Type: 
  Country: None (occurrence: None)
  Receive Date: 20111007
  Receipt Date: 20110928
  Transmission Date: 20120403
  Serious: Yes (Hospitalization)
  Sender: FDA-Public Use
  Company Number: JP-NOVOPROD-263768

PATIENT

DRUGS (2)
  1. NORDITROPIN NORDIFLEX [Suspect]
     Indication: GROWTH HORMONE DEFICIENCY
     Dosage: 7 MG, QW
     Dates: start: 20061226
  2. GROWJECT [Concomitant]
     Indication: GROWTH HORMONE DEFICIENCY
     Dosage: 7 MG, QW
     Route: 058

REACTIONS (1)
  - RETINAL DETACHMENT [None]
